FAERS Safety Report 7909469 (Version 14)
Quarter: 2017Q2

REPORT INFORMATION
  Report Type: Spontaneous
  Country: US (occurrence: US)
  Receive Date: 20110420
  Receipt Date: 20170628
  Transmission Date: 20170830
  Serious: Yes (Other)
  Sender: FDA-Public Use
  Company Number: US-ASTRAZENECA-2011SE21255

PATIENT
  Age: 49 Year
  Sex: Female
  Weight: 87.1 kg

DRUGS (31)
  1. SYMBICORT [Suspect]
     Active Substance: BUDESONIDE\FORMOTEROL FUMARATE DIHYDRATE
     Indication: ASTHMA
     Dosage: 160/4.5 UG TWO PUFFS TWICE DAILY
     Route: 055
  2. AMBIEN [Concomitant]
     Active Substance: ZOLPIDEM TARTRATE
     Indication: SLEEP DISORDER
  3. VITAMIN D OTC [Concomitant]
  4. DEXILANT [Concomitant]
     Active Substance: DEXLANSOPRAZOLE
     Indication: GASTROOESOPHAGEAL REFLUX DISEASE
  5. DIFLUCAN [Concomitant]
     Active Substance: FLUCONAZOLE
     Indication: FUNGAL INFECTION
  6. PULMICORT FLEXHALER [Suspect]
     Active Substance: BUDESONIDE
     Indication: ASTHMA
     Route: 055
  7. PULMICORT FLEXHALER [Suspect]
     Active Substance: BUDESONIDE
     Indication: ASTHMA
     Dosage: 180 MCG 1 PUFF TWICE A DAY
     Route: 055
  8. ZOLPIDEM [Concomitant]
     Active Substance: ZOLPIDEM\ZOLPIDEM TARTRATE
     Dosage: 5.0MG UNKNOWN
  9. PREMARIN [Concomitant]
     Active Substance: ESTROGENS, CONJUGATED
     Indication: FUNGAL INFECTION
  10. PROVENTIL [Concomitant]
     Active Substance: ALBUTEROL
     Indication: ASTHMA
     Dosage: AS REQUIRED
  11. MONTELUKAST [Concomitant]
     Active Substance: MONTELUKAST SODIUM
     Dosage: 10.0MG UNKNOWN
  12. PURBIOTIC [Concomitant]
  13. PREDNISONE. [Concomitant]
     Active Substance: PREDNISONE
     Indication: ASTHMA
  14. MACRODANTIN [Concomitant]
     Active Substance: NITROFURANTOIN
     Indication: ILL-DEFINED DISORDER
     Dosage: 50.0MG AS REQUIRED
  15. PREDNISONE. [Concomitant]
     Active Substance: PREDNISONE
     Indication: MULTIPLE ALLERGIES
  16. SYMBICORT [Suspect]
     Active Substance: BUDESONIDE\FORMOTEROL FUMARATE DIHYDRATE
     Indication: CHRONIC OBSTRUCTIVE PULMONARY DISEASE
     Dosage: 80/4.5 UG TWO INHALATIONS TWICE DAILY
     Route: 055
     Dates: start: 201701
  17. ZYRTEC-D ALLERGY AND CONGESTION [Concomitant]
     Active Substance: CETIRIZINE HYDROCHLORIDE\PSEUDOEPHEDRINE HYDROCHLORIDE
     Indication: MULTIPLE ALLERGIES
     Dosage: 12 HOUR DAILY IN THE MORNING
  18. THYROID [Concomitant]
     Active Substance: LEVOTHYROXINE\LIOTHYRONINE
     Indication: THYROID DISORDER
     Dosage: 65.0MG AS REQUIRED
  19. SYMBICORT [Suspect]
     Active Substance: BUDESONIDE\FORMOTEROL FUMARATE DIHYDRATE
     Indication: ASTHMA
     Dosage: 80/4.5 UG TWO INHALATIONS TWICE DAILY
     Route: 055
     Dates: start: 201701
  20. MOBIC (GEN) [Concomitant]
     Indication: ARTHRITIS
  21. SINGULAIR (GENERIC) [Concomitant]
     Indication: ASTHMA
  22. MELOXICAM. [Concomitant]
     Active Substance: MELOXICAM
     Dosage: 15.0MG UNKNOWN
  23. METFORMIN HYDROCHLORIDE. [Concomitant]
     Active Substance: METFORMIN HYDROCHLORIDE
     Indication: DIABETES MELLITUS
  24. SYMBICORT [Suspect]
     Active Substance: BUDESONIDE\FORMOTEROL FUMARATE DIHYDRATE
     Indication: CHRONIC OBSTRUCTIVE PULMONARY DISEASE
     Dosage: 160/4.5 UG TWO PUFFS TWICE DAILY
     Route: 055
  25. PULMICORT FLEXHALER [Suspect]
     Active Substance: BUDESONIDE
     Indication: ASTHMA
     Route: 055
  26. NEXIUM [Suspect]
     Active Substance: ESOMEPRAZOLE MAGNESIUM
     Route: 048
  27. LISINOPRIL. [Suspect]
     Active Substance: LISINOPRIL
     Route: 048
  28. NASONEX [Concomitant]
     Active Substance: MOMETASONE FUROATE
     Indication: NASAL DISORDER
  29. LIPITOR [Concomitant]
     Active Substance: ATORVASTATIN CALCIUM
     Dosage: 20.0MG UNKNOWN
  30. ESTER-C [Concomitant]
     Active Substance: CALCIUM\VITAMINS
  31. MONISTAT [Concomitant]
     Active Substance: MICONAZOLE NITRATE

REACTIONS (26)
  - Wrist fracture [Recovering/Resolving]
  - Drug ineffective [Unknown]
  - Granuloma annulare [Unknown]
  - Arthritis [Unknown]
  - Weight decreased [Unknown]
  - Immune system disorder [Unknown]
  - Sinusitis [Unknown]
  - Fall [Recovering/Resolving]
  - Drug hypersensitivity [Not Recovered/Not Resolved]
  - Gingival cancer [Unknown]
  - Ear infection [Not Recovered/Not Resolved]
  - Intentional product misuse [Unknown]
  - Respiratory disorder [Unknown]
  - Urethritis [Unknown]
  - Insomnia [Unknown]
  - Fungal infection [Unknown]
  - Nephrolithiasis [Not Recovered/Not Resolved]
  - Glucose tolerance impaired [Not Recovered/Not Resolved]
  - Body height decreased [Not Recovered/Not Resolved]
  - Hypersensitivity [Unknown]
  - Hypertension [Unknown]
  - Drug dose omission [Unknown]
  - Neoplasm malignant [Unknown]
  - Asthma [Unknown]
  - Respiratory tract infection [Unknown]
  - Fatigue [Unknown]

NARRATIVE: CASE EVENT DATE: 2008
